FAERS Safety Report 11400484 (Version 1)
Quarter: 2015Q3

REPORT INFORMATION
  Report Type: Spontaneous
  Country: US (occurrence: US)
  Receive Date: 20150820
  Receipt Date: 20150820
  Transmission Date: 20151125
  Serious: No
  Sender: FDA-Public Use
  Company Number: US-PFIZER INC-2015277566

PATIENT
  Age: 63 Year
  Sex: Female

DRUGS (2)
  1. LATANOPROST. [Suspect]
     Active Substance: LATANOPROST
     Indication: DRY EYE
     Dosage: ONE DROP IN AFFECTED EYE NIGHTLY
     Dates: start: 2014
  2. LATANOPROST. [Suspect]
     Active Substance: LATANOPROST
     Dosage: ONE DROP IN AFFECTED EYE NIGHTLY
     Dates: start: 2014

REACTIONS (2)
  - Product use issue [Unknown]
  - Eye irritation [Unknown]

NARRATIVE: CASE EVENT DATE: 201508
